FAERS Safety Report 12370162 (Version 1)
Quarter: 2016Q2

REPORT INFORMATION
  Report Type: Spontaneous
  Country: US (occurrence: US)
  Receive Date: 20160516
  Receipt Date: 20160516
  Transmission Date: 20160815
  Serious: No
  Sender: FDA-Public Use
  Company Number: US-ASTRAZENECA-2016SE47381

PATIENT
  Age: 23757 Day
  Sex: Female
  Weight: 74.8 kg

DRUGS (2)
  1. BYDUREON [Suspect]
     Active Substance: EXENATIDE
     Route: 058
     Dates: start: 20160326
  2. BYDUREON [Suspect]
     Active Substance: EXENATIDE
     Dosage: 4 COUNT
     Route: 058
     Dates: start: 20160326

REACTIONS (6)
  - Skin irritation [Unknown]
  - Injection site nodule [Unknown]
  - Product quality issue [Unknown]
  - Injection site pruritus [Unknown]
  - Drug dose omission [Unknown]
  - Injection site swelling [Unknown]

NARRATIVE: CASE EVENT DATE: 20160402
